FAERS Safety Report 20228034 (Version 3)
Quarter: 2022Q1

REPORT INFORMATION
  Report Type: Spontaneous
  Country: US (occurrence: US)
  Receive Date: 20211224
  Receipt Date: 20220321
  Transmission Date: 20220423
  Serious: No
  Sender: FDA-Public Use
  Company Number: US-BIOGEN-2021BI01081024

PATIENT
  Sex: Male

DRUGS (1)
  1. TYSABRI [Suspect]
     Active Substance: NATALIZUMAB
     Indication: Multiple sclerosis
     Route: 065
     Dates: start: 20210706

REACTIONS (3)
  - Increased appetite [Not Recovered/Not Resolved]
  - Food craving [Not Recovered/Not Resolved]
  - Blood pressure increased [Not Recovered/Not Resolved]
